FAERS Safety Report 7676708-1 (Version None)
Quarter: 2011Q3

REPORT INFORMATION
  Report Type: 
  Country: None (occurrence: None)
  Receive Date: 20110811
  Receipt Date: 20110803
  Transmission Date: 20111222
  Serious: Yes (Other)
  Sender: FDA-Public Use
  Company Number: US-RB-027537-11

PATIENT
  Age: 52 Year
  Sex: Female

DRUGS (1)
  1. MUCINEX DM [Suspect]
     Route: 048
     Dates: start: 20110701

REACTIONS (2)
  - INCORRECT DRUG ADMINISTRATION DURATION [None]
  - EPISTAXIS [None]
